FAERS Safety Report 16850687 (Version 1)
Quarter: 2019Q3

REPORT INFORMATION
  Report Type: Spontaneous
  Country: US (occurrence: US)
  Receive Date: 20190925
  Receipt Date: 20190925
  Transmission Date: 20191005
  Serious: No
  Sender: FDA-Public Use
  Company Number: US-THERAPEUTICSMD-2019TMD01771

PATIENT
  Age: 69 Year
  Sex: Female

DRUGS (2)
  1. UNSPECIFIED MEDICATION FOR HYPOTHYROIDISM [Concomitant]
     Active Substance: UNSPECIFIED INGREDIENT
  2. IMVEXXY [Suspect]
     Active Substance: ESTRADIOL
     Indication: NOCTURIA
     Dosage: UNK

REACTIONS (3)
  - Headache [Unknown]
  - Drug ineffective for unapproved indication [Unknown]
  - Lethargy [Not Recovered/Not Resolved]

NARRATIVE: CASE EVENT DATE: 20190702
